FAERS Safety Report 13634111 (Version 1)
Quarter: 2017Q2

REPORT INFORMATION
  Report Type: Spontaneous
  Country: US (occurrence: US)
  Receive Date: 20170531
  Receipt Date: 20170531
  Transmission Date: 20170830
  Serious: No
  Sender: FDA-Public Use
  Company Number: US-ASTELLAS-1606438

PATIENT
  Sex: Male

DRUGS (15)
  1. TARCEVA [Suspect]
     Active Substance: ERLOTINIB HYDROCHLORIDE
     Indication: METASTASES TO PLEURA
     Dosage: TAKE 1 TABLET BY MOUTH EVERY DAY
     Route: 048
     Dates: start: 20150317
  2. BENICAR [Concomitant]
     Active Substance: OLMESARTAN MEDOXOMIL
     Dosage: 40-25 MG
     Route: 065
  3. EMU OIL [Concomitant]
     Active Substance: EMU OIL
     Dosage: 0.05%
     Route: 065
  4. ADVAIR HFA [Concomitant]
     Active Substance: FLUTICASONE PROPIONATE\SALMETEROL XINAFOATE
  5. DIGOXIN. [Concomitant]
     Active Substance: DIGOXIN
     Route: 065
  6. SPIRIVA [Concomitant]
     Active Substance: TIOTROPIUM BROMIDE MONOHYDRATE
     Route: 065
  7. RIFAMPIN. [Concomitant]
     Active Substance: RIFAMPIN
     Route: 065
  8. DUREZOL [Concomitant]
     Active Substance: DIFLUPREDNATE
  9. ACETAZOLAMIDE. [Concomitant]
     Active Substance: ACETAZOLAMIDE
     Route: 065
  10. ETHAMBUTOL [Concomitant]
     Active Substance: ETHAMBUTOL HYDROCHLORIDE
     Route: 065
  11. AZITHROMYCIN ANHYDROUS. [Concomitant]
     Active Substance: AZITHROMYCIN ANHYDROUS
     Route: 065
  12. OFLOXACIN. [Concomitant]
     Active Substance: OFLOXACIN
     Dosage: 0.3%
     Route: 047
  13. LATANOPROST. [Concomitant]
     Active Substance: LATANOPROST
     Dosage: SOL 0.005%
     Route: 065
  14. CARTIA (UNITED STATES) [Concomitant]
     Route: 065
  15. ILEVRO [Concomitant]
     Active Substance: NEPAFENAC
     Dosage: 0.3%
     Route: 047

REACTIONS (1)
  - Drug ineffective [Unknown]
